FAERS Safety Report 7216860-5 (Version None)
Quarter: 2011Q1

REPORT INFORMATION
  Report Type: 
  Country: None (occurrence: None)
  Receive Date: 20110104
  Receipt Date: 20110104
  Transmission Date: 20110831
  Serious: Yes (Other)
  Sender: FDA-Public Use
  Company Number: None

PATIENT
  Age: 52 Year
  Sex: Male
  Weight: 72.5755 kg

DRUGS (6)
  1. LORAZEPAM [Suspect]
     Indication: IRRITABILITY
     Dosage: 1 MG 2/DAY BUCCAL
     Route: 002
     Dates: start: 20100103, end: 20100113
  2. LORAZEPAM [Suspect]
     Indication: ANGER
     Dosage: 1 MG 2/DAY BUCCAL
     Route: 002
     Dates: start: 20100103, end: 20100113
  3. LORAZEPAM [Suspect]
     Indication: DEPRESSION
     Dosage: 1 MG 2/DAY BUCCAL
     Route: 002
     Dates: start: 20100103, end: 20100113
  4. LORAZEPAM [Suspect]
     Indication: IRRITABILITY
     Dosage: 1 MG 2/DAY BUCCAL
     Route: 002
     Dates: start: 20100901, end: 20101213
  5. LORAZEPAM [Suspect]
     Indication: ANGER
     Dosage: 1 MG 2/DAY BUCCAL
     Route: 002
     Dates: start: 20100901, end: 20101213
  6. LORAZEPAM [Suspect]
     Indication: DEPRESSION
     Dosage: 1 MG 2/DAY BUCCAL
     Route: 002
     Dates: start: 20100901, end: 20101213

REACTIONS (5)
  - RASH [None]
  - INFECTION [None]
  - VISUAL ACUITY REDUCED [None]
  - IRRITABILITY [None]
  - MOOD ALTERED [None]
